FAERS Safety Report 10525299 (Version 4)
Quarter: 2014Q4

REPORT INFORMATION
  Report Type: Spontaneous
  Country: JP (occurrence: None)
  Receive Date: 20141015
  Receipt Date: 20141118
  Transmission Date: 20150528
  Serious: No
  Sender: FDA-Public Use
  Company Number: JP2014JPN001749

PATIENT
  Age: 73 Year
  Sex: Male

DRUGS (4)
  1. EPZICOM [Suspect]
     Active Substance: ABACAVIR SULFATE\LAMIVUDINE
     Indication: HIV INFECTION
     Dosage: 1 DF, QD
     Dates: start: 20120604
  2. TIVICAY [Suspect]
     Active Substance: DOLUTEGRAVIR SODIUM
     Indication: HIV INFECTION
     Route: 048
     Dates: start: 201406
  3. ZOPICLONE (ZOPICLONE) [Concomitant]
     Active Substance: ZOPICLONE
  4. STOCRIN (EFAVIRENZ) [Concomitant]

REACTIONS (7)
  - Eczema [None]
  - Pain of skin [None]
  - Scar [None]
  - Rash macular [None]
  - Pigmentation disorder [None]
  - Pruritus [None]
  - Scratch [None]

NARRATIVE: CASE EVENT DATE: 201406
